FAERS Safety Report 13095280 (Version 1)
Quarter: 2017Q1

REPORT INFORMATION
  Report Type: Spontaneous
  Country: US (occurrence: US)
  Receive Date: 20170107
  Receipt Date: 20170107
  Transmission Date: 20170428
  Serious: No
  Sender: FDA-Public Use
  Company Number: US-DRREDDYS-DRL/USA/16/0079499

PATIENT
  Age: 69 Year
  Sex: Female

DRUGS (4)
  1. LISINOPRIL. [Concomitant]
     Active Substance: LISINOPRIL
     Indication: BLOOD PRESSURE ABNORMAL
     Route: 065
  2. SIMVASTATIN. [Concomitant]
     Active Substance: SIMVASTATIN
     Indication: BLOOD CHOLESTEROL ABNORMAL
     Route: 065
  3. HABITROL [Suspect]
     Active Substance: NICOTINE
     Indication: SMOKING CESSATION THERAPY
     Route: 065
     Dates: start: 20160404
  4. LISINOPRIL. [Concomitant]
     Active Substance: LISINOPRIL
     Indication: HEART RATE ABNORMAL

REACTIONS (7)
  - Pulse abnormal [Unknown]
  - Product quality issue [Unknown]
  - Treatment noncompliance [Unknown]
  - Pain [Unknown]
  - Neck pain [Unknown]
  - Drug prescribing error [Unknown]
  - Blood glucose abnormal [Recovered/Resolved]
